FAERS Safety Report 15847899 (Version 4)
Quarter: 2019Q1

REPORT INFORMATION
  Report Type: Spontaneous
  Country: DE (occurrence: DE)
  Receive Date: 20190121
  Receipt Date: 20190222
  Transmission Date: 20190417
  Serious: Yes (Death, Hospitalization)
  Sender: FDA-Public Use
  Company Number: DE-ROCHE-2244483

PATIENT
  Age: 94 Year
  Sex: Female
  Weight: 58 kg

DRUGS (9)
  1. HEPARIN [Concomitant]
     Active Substance: HEPARIN SODIUM
     Indication: PRODUCT USED FOR UNKNOWN INDICATION
     Dosage: QD AFTERNOON
     Route: 065
     Dates: start: 201605
  2. DOMPERIDONE [Suspect]
     Active Substance: DOMPERIDONE
     Indication: VOMITING
  3. METOCLOPRAMIDE. [Concomitant]
     Active Substance: METOCLOPRAMIDE
     Indication: GASTROINTESTINAL DISORDER
     Dosage: QD MORNING
     Route: 050
     Dates: start: 201505
  4. DOMPERIDONE [Suspect]
     Active Substance: DOMPERIDONE
     Indication: NAUSEA
  5. TORASEMIDE [Concomitant]
     Active Substance: TORSEMIDE
     Indication: ESSENTIAL HYPERTENSION
     Dosage: QD MORNING
     Route: 050
  6. MOXIFLOXACIN. [Suspect]
     Active Substance: MOXIFLOXACIN
     Indication: URINARY TRACT INFECTION
     Route: 048
     Dates: start: 20181215, end: 20181217
  7. DOMPERIDONE [Suspect]
     Active Substance: DOMPERIDONE
     Indication: GASTROINTESTINAL DISORDER
     Dosage: LAST DOSE ON 18/DEC/2018
     Route: 048
     Dates: start: 2015
  8. DIAZEPAM. [Suspect]
     Active Substance: DIAZEPAM
     Indication: PRODUCT USED FOR UNKNOWN INDICATION
     Route: 065
  9. ASPIRIN PROTECT [Concomitant]
     Active Substance: ASPIRIN
     Indication: CEREBROVASCULAR ACCIDENT
     Dosage: QD AFTERNOON
     Route: 050
     Dates: start: 199707

REACTIONS (17)
  - Confusional state [Recovering/Resolving]
  - Pyrexia [Fatal]
  - Heart rate increased [Recovering/Resolving]
  - Psychomotor hyperactivity [Recovering/Resolving]
  - Panic attack [Recovering/Resolving]
  - Oral discharge [Fatal]
  - Logorrhoea [Recovering/Resolving]
  - Abnormal behaviour [Recovering/Resolving]
  - Panic reaction [Fatal]
  - Hallucination [Recovering/Resolving]
  - Pneumonia aspiration [Fatal]
  - Scatolia [Fatal]
  - Agitation [Recovering/Resolving]
  - Mental disorder [Fatal]
  - Crying [Recovering/Resolving]
  - Anxiety disorder [Recovering/Resolving]
  - Cystitis [Recovering/Resolving]

NARRATIVE: CASE EVENT DATE: 201812
